FAERS Safety Report 5220726-X (Version None)
Quarter: 2007Q1

REPORT INFORMATION
  Report Type: 
  Country: None (occurrence: None)
  Receive Date: 20070126
  Receipt Date: 20070122
  Transmission Date: 20070707
  Serious: Yes (Other)
  Sender: FDA-Public Use
  Company Number: 2006UW26997

PATIENT
  Age: 59 Year
  Sex: Female
  Weight: 54.4 kg

DRUGS (2)
  1. ARIMIDEX [Suspect]
     Indication: BREAST CANCER
     Route: 048
     Dates: start: 20060701, end: 20061202
  2. EFFEXOR XR [Concomitant]

REACTIONS (8)
  - ARTHRALGIA [None]
  - CARPAL TUNNEL SYNDROME [None]
  - FATIGUE [None]
  - NERVE INJURY [None]
  - PAIN IN EXTREMITY [None]
  - TRIGGER FINGER [None]
  - VISUAL DISTURBANCE [None]
  - WEIGHT INCREASED [None]
